FAERS Safety Report 23584009 (Version 1)
Quarter: 2024Q1

REPORT INFORMATION
  Report Type: Spontaneous
  Country: JP (occurrence: JP)
  Receive Date: 20240301
  Receipt Date: 20240301
  Transmission Date: 20240410
  Serious: Yes (Death, Hospitalization, Other)
  Sender: FDA-Public Use
  Company Number: JP-BAXTER-2024BAX013065

PATIENT
  Age: 52 Year
  Sex: Female

DRUGS (2)
  1. REGUNEAL LCA [Suspect]
     Active Substance: CALCIUM CHLORIDE\DEXTROSE MONOHYDRATE\HYDROCHLORIC ACID\MAGNESIUM CHLORIDE\SODIUM BICARBONATE\SODIUM
     Indication: Dialysis
     Dosage: UNK
     Route: 033
     Dates: start: 20201022, end: 20240203
  2. HEPARIN CALCIUM [Concomitant]
     Active Substance: HEPARIN CALCIUM
     Indication: Thrombosis prophylaxis
     Dosage: SELF INJECTION
     Route: 065
     Dates: start: 20231108, end: 20240202

REACTIONS (8)
  - Gastrointestinal necrosis [Fatal]
  - Blood pressure decreased [Fatal]
  - Gastrointestinal wall thickening [Fatal]
  - Gastrointestinal oedema [Fatal]
  - Lung neoplasm malignant [Fatal]
  - Thrombophlebitis migrans [Fatal]
  - Cerebral infarction [Not Recovered/Not Resolved]
  - Visual field defect [Unknown]

NARRATIVE: CASE EVENT DATE: 20231024
